FAERS Safety Report 6188136-9 (Version None)
Quarter: 2009Q2

REPORT INFORMATION
  Report Type: 
  Country: None (occurrence: None)
  Receive Date: 20090513
  Receipt Date: 20081117
  Transmission Date: 20091009
  Serious: No
  Sender: FDA-Public Use
  Company Number: A0757055A

PATIENT
  Age: 56 Year
  Sex: Female

DRUGS (11)
  1. ISRADIPINE [Suspect]
     Indication: HYPERTENSION
     Dosage: 5MG TWICE PER DAY
     Route: 048
     Dates: start: 20080701
  2. CRESTOR [Concomitant]
  3. CLARINEX [Concomitant]
  4. DURAXIL [Concomitant]
  5. PRILOSEC [Concomitant]
  6. ASPIRIN [Concomitant]
  7. IMITREX [Concomitant]
  8. VITAMINS [Concomitant]
  9. XANAX [Concomitant]
  10. SOMA [Concomitant]
  11. PHENERGAN [Concomitant]

REACTIONS (1)
  - NAUSEA [None]
